FAERS Safety Report 8178107-5 (Version None)
Quarter: 2012Q1

REPORT INFORMATION
  Report Type: 
  Country: None (occurrence: None)
  Receive Date: 20120127
  Receipt Date: 20111103
  Transmission Date: 20120608
  Serious: Yes (Hospitalization)
  Sender: FDA-Public Use
  Company Number: AMAG201100222

PATIENT
  Age: 58 Year
  Sex: Female
  Weight: 132.9 kg

DRUGS (26)
  1. ALBUTEROL (ALBUTEROL) INHALER [Concomitant]
  2. PERCOCET (OXYCODONE HYDROCHLORIDE, PARACETAMOL) TABLET, 10/325 [Concomitant]
  3. VERAPAMIL (VERAPAMIL HYDROCHLORIDE) TABLET, 10 MG [Concomitant]
  4. NAPROXEN (ALEVE) [Concomitant]
  5. SYNTHROID (LEVOTHYROXINE SODIUM) TABLET, 25 UG [Concomitant]
  6. ZETIA (EZETIMIBE) TABLET, 10 MG [Concomitant]
  7. FLEXERIL (CYCLOBENZAPRINE HYDROCHLORIDE) TABLET, 10 MG [Concomitant]
  8. FOLIC ACID (FOLIC ACID) TABLET, 800 UG [Concomitant]
  9. XANAX [Concomitant]
  10. ADVAIR DISKUS (FLUTICASONE PROPIONATE, SALMETEROL XINAFOATE) INHALER [Concomitant]
  11. LEXAPRO (ESCITALOPRAM OXALATE) TABLET, 20 MG [Concomitant]
  12. LASIX (FUROSEMIDE) TABLET, 40 MG [Concomitant]
  13. ALLOPURINOL (ALLOPURINOL) TABLET, 100 MG [Concomitant]
  14. AMBIEN [Concomitant]
  15. GLIPIZIDE (GLIPIZIDE) TABLET, 5 MG [Concomitant]
  16. HYDROCHLOROTHIAZIDE (HYDROCHLOROTHIAZIDE) TABLET, 25 MG [Concomitant]
  17. NEURONTIN (GABAPENTIN) TABLET, 100 MG [Concomitant]
  18. METFORMIN (METFORMIN HYDROCHLORIDE), 500 MG [Concomitant]
  19. BUMEX (BUMETANIDE) TABLET, 2 MG [Concomitant]
  20. FENTANYL (FENTANYL CITRATE) PATCH, 50 UG [Concomitant]
  21. MIRALAX (MACROGOL) POWDER (EXCEPT [DPO]) [Concomitant]
  22. FERAHEME [Suspect]
     Indication: IRON DEFICIENCY ANAEMIA
     Dosage: 510 MG, SINGLE, IV BOLUS
     Route: 040
     Dates: start: 20111025, end: 20111025
  23. FERAHEME [Suspect]
     Indication: RENAL FAILURE CHRONIC
     Dosage: 510 MG, SINGLE, IV BOLUS
     Route: 040
     Dates: start: 20111025, end: 20111025
  24. FLONASE (FLUTICASONE PROPIONATE) NASAL DROP (NASAL SPRAY TOO) [Concomitant]
  25. PREMARIN [Concomitant]
  26. TRICOR (FENOFIBRATE) TABLET, 145 MG [Concomitant]

REACTIONS (1)
  - HYPERSENSITIVITY [None]
